FAERS Safety Report 11300632 (Version 1)
Quarter: 2015Q3

REPORT INFORMATION
  Report Type: Spontaneous
  Country: US (occurrence: US)
  Receive Date: 20150722
  Receipt Date: 20150722
  Transmission Date: 20151125
  Serious: No
  Sender: FDA-Public Use
  Company Number: US-ELI_LILLY_AND_COMPANY-US201301006086

PATIENT
  Sex: Male

DRUGS (11)
  1. ZOCOR [Concomitant]
     Active Substance: SIMVASTATIN
     Dosage: 20 MG, EACH EVENING
  2. NITROGLYCERIN. [Concomitant]
     Active Substance: NITROGLYCERIN
  3. EFFIENT [Suspect]
     Active Substance: PRASUGREL HYDROCHLORIDE
     Dosage: 10 MG, QD
     Dates: start: 201204, end: 20121222
  4. TRAZODONE [Concomitant]
     Active Substance: TRAZODONE HYDROCHLORIDE
     Dosage: 50 MG, PRN
  5. PRILOSEC [Concomitant]
     Active Substance: OMEPRAZOLE MAGNESIUM
  6. EFFIENT [Suspect]
     Active Substance: PRASUGREL HYDROCHLORIDE
     Dosage: UNK
     Dates: start: 20130110
  7. SINGULAIR [Concomitant]
     Active Substance: MONTELUKAST SODIUM
     Dosage: 10 MG, EACH EVENING
  8. NORVASC [Concomitant]
     Active Substance: AMLODIPINE BESYLATE
  9. LISINOPRIL. [Concomitant]
     Active Substance: LISINOPRIL
  10. BENZONATATE. [Concomitant]
     Active Substance: BENZONATATE
     Dosage: 200 MG, PRN
  11. METFORMIN [Concomitant]
     Active Substance: METFORMIN HYDROCHLORIDE
     Indication: DIABETES MELLITUS

REACTIONS (3)
  - Chest pain [Recovering/Resolving]
  - Dyspnoea [Recovering/Resolving]
  - Chest discomfort [Recovering/Resolving]
